FAERS Safety Report 9066257 (Version 1)
Quarter: 2013Q1

REPORT INFORMATION
  Report Type: Report from Study
  Country: US (occurrence: US)
  Receive Date: 20130131
  Receipt Date: 20130131
  Transmission Date: 20140127
  Serious: No
  Sender: FDA-Public Use
  Company Number: US-ABBOTT-12P-163-0989868-00

PATIENT
  Age: 45 Year
  Sex: Female

DRUGS (9)
  1. HUMIRA [Suspect]
     Indication: CROHN^S DISEASE
     Route: 058
     Dates: start: 20120829, end: 20120829
  2. HUMIRA [Suspect]
     Dosage: LOADING DOSE
     Dates: start: 20120912, end: 20120912
  3. HUMIRA [Suspect]
     Dates: start: 20120926
  4. HUMIRA [Suspect]
     Dates: start: 20121205
  5. XANAX [Concomitant]
     Indication: PRODUCT USED FOR UNKNOWN INDICATION
  6. IRON INFUSION [Concomitant]
     Indication: ANAEMIA
     Dosage: AS NEEDED (LAST ONE WAS 6 MONTHS AGO)
  7. FOLIC ACID [Concomitant]
     Indication: CROHN^S DISEASE
     Dosage: 1MG DAILY
  8. VITAMIN B12 [Concomitant]
     Indication: CROHN^S DISEASE
     Dosage: 1000 MCG/ML
  9. CALTRATE WITH VITAMIN D [Concomitant]
     Indication: CROHN^S DISEASE

REACTIONS (1)
  - Headache [Not Recovered/Not Resolved]
